FAERS Safety Report 11100538 (Version 2)
Quarter: 2015Q2

REPORT INFORMATION
  Report Type: Spontaneous
  Country: DE (occurrence: DE)
  Receive Date: 20150508
  Receipt Date: 20150604
  Transmission Date: 20150821
  Serious: Yes (Hospitalization, Other)
  Sender: FDA-Public Use
  Company Number: DE-UCBSA-2015013840

PATIENT
  Age: 14 Year
  Sex: Female
  Weight: 47 kg

DRUGS (3)
  1. KEPPRA [Suspect]
     Active Substance: LEVETIRACETAM
     Dosage: 500 MG 2 TABLETS, TOTAL AMOUNT 1000 MG
     Route: 048
     Dates: start: 20150423, end: 20150423
  2. KEPPRA [Suspect]
     Active Substance: LEVETIRACETAM
     Indication: PRODUCT USED FOR UNKNOWN INDICATION
     Dosage: UNK
  3. KEPPRA [Suspect]
     Active Substance: LEVETIRACETAM
     Dosage: (STRENGTH:500 MG,2 TABLETS, TOTAL AMOUNT:1000 MG)(750 MG,2 FILM FILM COTED TABLETS ,TOTAL 1500MG)
     Route: 048
     Dates: start: 20150423, end: 20150423

REACTIONS (4)
  - Headache [Recovered/Resolved]
  - Intentional overdose [Unknown]
  - Suicide attempt [Recovered/Resolved]
  - Dizziness [Recovered/Resolved]

NARRATIVE: CASE EVENT DATE: 201504
